FAERS Safety Report 25121187 (Version 2)
Quarter: 2025Q1

REPORT INFORMATION
  Report Type: Spontaneous
  Country: IT (occurrence: IT)
  Receive Date: 20250326
  Receipt Date: 20250329
  Transmission Date: 20250409
  Serious: Yes (Hospitalization, Other)
  Sender: AUROBINDO
  Company Number: IT-MYLANLABS-2025M1019167

PATIENT
  Age: 68 Year
  Sex: Male

DRUGS (4)
  1. IMATINIB [Suspect]
     Active Substance: IMATINIB
     Indication: Chronic myeloid leukaemia
     Route: 065
  2. DASATINIB [Suspect]
     Active Substance: DASATINIB
     Indication: Acute promyelocytic leukaemia
     Dosage: 100 MILLIGRAM, ONCE A DAY
     Route: 065
  3. IDARUBICIN [Suspect]
     Active Substance: IDARUBICIN
     Indication: Acute promyelocytic leukaemia
     Route: 065
  4. TRETINOIN [Suspect]
     Active Substance: TRETINOIN
     Indication: Acute promyelocytic leukaemia
     Route: 065

REACTIONS (8)
  - Drug ineffective [Unknown]
  - Gastric ulcer [Unknown]
  - Leukocytosis [Unknown]
  - Thrombocytopenia [Unknown]
  - Condition aggravated [Unknown]
  - Pyrexia [Unknown]
  - Pneumonia [Unknown]
  - Drug resistance [Unknown]
